FAERS Safety Report 10913166 (Version 1)
Quarter: 2015Q1

REPORT INFORMATION
  Report Type: Spontaneous
  Country: US (occurrence: None)
  Receive Date: 20150310
  Receipt Date: 20150310
  Transmission Date: 20150721
  Serious: Yes (Life-Threatening)
  Sender: FDA-Public Use
  Company Number: None

PATIENT
  Age: 2 Year
  Sex: Female
  Weight: 13.38 kg

DRUGS (1)
  1. ERYTHROMYCIN ETHYLSUCCINATE. [Suspect]
     Active Substance: ERYTHROMYCIN ETHYLSUCCINATE
     Indication: PHARYNGITIS STREPTOCOCCAL
     Dosage: 1/2 TABLET
     Route: 048
     Dates: start: 20150215, end: 20150225

REACTIONS (5)
  - Therapeutic response decreased [None]
  - Peripheral swelling [None]
  - Angioedema [None]
  - Viral rash [None]
  - Serum sickness [None]

NARRATIVE: CASE EVENT DATE: 20150302
